FAERS Safety Report 7717251-0 (Version None)
Quarter: 2011Q3

REPORT INFORMATION
  Report Type: 
  Country: None (occurrence: None)
  Receive Date: 20110826
  Receipt Date: 20110826
  Transmission Date: 20111222
  Serious: Yes (Other)
  Sender: FDA-Public Use
  Company Number: None

PATIENT
  Sex: Male
  Weight: 135 kg

DRUGS (1)
  1. PAZOPANIB 200 MG TABLETS [Suspect]
     Indication: RENAL CELL CARCINOMA
     Dosage: 800 MG PO DAILY
     Route: 048
     Dates: start: 20110630, end: 20110823

REACTIONS (2)
  - ALANINE AMINOTRANSFERASE INCREASED [None]
  - ASPARTATE AMINOTRANSFERASE INCREASED [None]
